FAERS Safety Report 13391036 (Version 1)
Quarter: 2017Q1

REPORT INFORMATION
  Report Type: Spontaneous
  Country: US (occurrence: US)
  Receive Date: 20170331
  Receipt Date: 20170331
  Transmission Date: 20170429
  Serious: Yes (Hospitalization, Other)
  Sender: FDA-Public Use
  Company Number: US-GLAXOSMITHKLINE-US2017044887

PATIENT
  Age: 44 Year
  Sex: Female

DRUGS (7)
  1. ALBUTEROL. [Concomitant]
     Active Substance: ALBUTEROL
     Indication: PRODUCT USED FOR UNKNOWN INDICATION
     Dosage: UNK
     Dates: start: 2009
  2. BUSPAR [Concomitant]
     Active Substance: BUSPIRONE HYDROCHLORIDE
     Indication: ANXIETY
     Dosage: UNK
     Dates: start: 2009
  3. NICORETTE [Suspect]
     Active Substance: NICOTINE
     Indication: SMOKING CESSATION THERAPY
     Dosage: 4 MG, UNK
     Dates: start: 20160623, end: 20161007
  4. NICODERM CQ [Suspect]
     Active Substance: NICOTINE
     Indication: SMOKING CESSATION THERAPY
     Dosage: 14 MG, QD
     Dates: start: 20160623, end: 20161104
  5. NICODERM CQ [Suspect]
     Active Substance: NICOTINE
     Indication: SMOKING CESSATION THERAPY
     Dosage: 21 MG, QD
     Dates: start: 20160623, end: 20161104
  6. NICODERM CQ [Suspect]
     Active Substance: NICOTINE
     Indication: SMOKING CESSATION THERAPY
     Dosage: 7 MG, QD
     Dates: start: 20160623, end: 20161104
  7. CELEXA [Concomitant]
     Active Substance: CITALOPRAM HYDROBROMIDE
     Indication: DEPRESSION
     Dosage: UNK
     Dates: start: 2009

REACTIONS (14)
  - Nasal necrosis [Unknown]
  - Rhinitis [Unknown]
  - Immune system disorder [Unknown]
  - Sinus disorder [Unknown]
  - Upper airway necrosis [Unknown]
  - Skin disorder [Unknown]
  - Nasal disorder [Unknown]
  - Off label use [Unknown]
  - Sinusitis [Unknown]
  - Debridement [Unknown]
  - Road traffic accident [Unknown]
  - Facial bones fracture [Unknown]
  - Condition aggravated [Unknown]
  - Intentional product misuse [Unknown]

NARRATIVE: CASE EVENT DATE: 20160623
